FAERS Safety Report 4840135-2 (Version None)
Quarter: 2005Q4

REPORT INFORMATION
  Report Type: 
  Country: None (occurrence: None)
  Receive Date: 20051125
  Receipt Date: 20051114
  Transmission Date: 20060501
  Serious: Yes (Hospitalization)
  Sender: FDA-Public Use
  Company Number: 2005155270

PATIENT
  Age: 23 Month
  Sex: Male
  Weight: 9.0719 kg

DRUGS (1)
  1. ADVANCED RELIEF VISINE (POVIDONE, DEXTRAN 70, POLYETHYLENE GLYCOL, TET [Suspect]
     Indication: ACCIDENTAL EXPOSURE
     Dosage: ORAL
     Route: 048
     Dates: start: 20051114, end: 20051114

REACTIONS (4)
  - ACCIDENTAL DRUG INTAKE BY CHILD [None]
  - BLOOD PRESSURE DECREASED [None]
  - LETHARGY [None]
  - SOMNOLENCE [None]
